FAERS Safety Report 8849221 (Version 1)
Quarter: 2012Q4

REPORT INFORMATION
  Report Type: Spontaneous
  Country: US (occurrence: None)
  Receive Date: 20121018
  Receipt Date: 20121018
  Transmission Date: 20130627
  Serious: Yes (Other)
  Sender: FDA-Public Use
  Company Number: None

PATIENT
  Age: 79 Year
  Sex: Female

DRUGS (1)
  1. FORTECORTIN [Suspect]
     Indication: PATHOLOGIC FRACTURE OF VERTEBRAE
     Route: 058
     Dates: start: 20120730, end: 20120831

REACTIONS (1)
  - Blood potassium increased [None]
